FAERS Safety Report 25169672 (Version 2)
Quarter: 2025Q2

REPORT INFORMATION
  Report Type: Spontaneous
  Country: US (occurrence: US)
  Receive Date: 20250407
  Receipt Date: 20250414
  Transmission Date: 20250717
  Serious: Yes (Other)
  Sender: MYLAN
  Company Number: US-MYLANLABS-2025M1027999

PATIENT
  Age: 17 Year
  Sex: Female
  Weight: 62.6 kg

DRUGS (2)
  1. LYRICA [Suspect]
     Active Substance: PREGABALIN
     Indication: Pelvic pain
     Dosage: 25 MILLIGRAM, BID (TWICE A DAY)
     Dates: start: 202406
  2. LYRICA [Suspect]
     Active Substance: PREGABALIN
     Dosage: 25 MILLIGRAM, QD (ONCE A DAY)
     Dates: start: 20250217, end: 20250314

REACTIONS (9)
  - Hallucination, auditory [Not Recovered/Not Resolved]
  - Brain fog [Not Recovered/Not Resolved]
  - Disturbance in attention [Unknown]
  - Depression [Not Recovered/Not Resolved]
  - Agitation [Not Recovered/Not Resolved]
  - Mood swings [Not Recovered/Not Resolved]
  - Nausea [Unknown]
  - Constipation [Unknown]
  - Off label use [Unknown]

NARRATIVE: CASE EVENT DATE: 20241101
